FAERS Safety Report 5038200-2 (Version None)
Quarter: 2006Q2

REPORT INFORMATION
  Report Type: 
  Country: None (occurrence: None)
  Receive Date: 20060622
  Receipt Date: 20060612
  Transmission Date: 20061013
  Serious: Yes (Hospitalization, Disabling, Other)
  Sender: FDA-Public Use
  Company Number: 2006015002

PATIENT
  Age: 54 Year
  Sex: Female
  Weight: 84.8226 kg

DRUGS (1)
  1. BEXTRA [Suspect]
     Indication: ARTHRALGIA
     Dosage: 1 IN 1 D
     Dates: start: 20021104

REACTIONS (3)
  - CEREBROVASCULAR ACCIDENT [None]
  - PHARMACEUTICAL PRODUCT COMPLAINT [None]
  - RENAL FAILURE ACUTE [None]
